FAERS Safety Report 14536542 (Version 2)
Quarter: 2018Q1

REPORT INFORMATION
  Report Type: Spontaneous
  Country: DE (occurrence: DE)
  Receive Date: 20180215
  Receipt Date: 20180227
  Transmission Date: 20180509
  Serious: Yes (Hospitalization, Other)
  Sender: FDA-Public Use
  Company Number: DE-ELI_LILLY_AND_COMPANY-DE201802003073

PATIENT
  Age: 56 Year
  Sex: Female

DRUGS (3)
  1. BEVACIZUMAB. [Suspect]
     Active Substance: BEVACIZUMAB
     Indication: METASTASES TO LIVER
     Dosage: 15 MG/M2, ON DAY 01
     Route: 065
     Dates: start: 201108
  2. CARBOPLATIN. [Suspect]
     Active Substance: CARBOPLATIN
     Indication: METASTASES TO LIVER
     Dosage: AUC OF 4, UNKNOWN
     Route: 065
     Dates: start: 201108, end: 201202
  3. GEMCITABINE HYDROCHLORIDE. [Suspect]
     Active Substance: GEMCITABINE HYDROCHLORIDE
     Indication: METASTASES TO LIVER
     Dosage: 1000 MG/M2, ON DAY 01 AND DAY 08
     Route: 065
     Dates: start: 201108, end: 201202

REACTIONS (1)
  - Gastropleural fistula [Recovered/Resolved]

NARRATIVE: CASE EVENT DATE: 2011
